FAERS Safety Report 10810515 (Version 1)
Quarter: 2015Q1

REPORT INFORMATION
  Report Type: Spontaneous
  Country: US (occurrence: None)
  Receive Date: 20150212
  Receipt Date: 20150212
  Transmission Date: 20150721
  Serious: Yes (Disabling, Other)
  Sender: FDA-Public Use
  Company Number: 1402-0336

PATIENT
  Age: 93 Year
  Sex: Female

DRUGS (2)
  1. EYLEA [Suspect]
     Active Substance: AFLIBERCEPT
     Indication: AGE-RELATED MACULAR DEGENERATION
     Route: 031
     Dates: start: 20140207, end: 20140207
  2. BETADINE /00080001/ (POVIDONE-IODINE) [Concomitant]

REACTIONS (2)
  - Uveitis [None]
  - Blindness transient [None]

NARRATIVE: CASE EVENT DATE: 20140208
